FAERS Safety Report 11382911 (Version 1)
Quarter: 2015Q3

REPORT INFORMATION
  Report Type: Spontaneous
  Country: FR (occurrence: FR)
  Receive Date: 20150814
  Receipt Date: 20150814
  Transmission Date: 20151125
  Serious: Yes (Hospitalization)
  Sender: FDA-Public Use
  Company Number: FR-ASTRAZENECA-2015SE77673

PATIENT
  Age: 13969 Day
  Sex: Male

DRUGS (3)
  1. ZOMIGORO [Suspect]
     Active Substance: ZOLMITRIPTAN
     Route: 048
  2. RELPAX [Suspect]
     Active Substance: ELETRIPTAN HYDROBROMIDE
     Route: 048
  3. SIBELIUM [Suspect]
     Active Substance: FLUNARIZINE
     Dosage: HALF A TABLET OF 10 MG AT NIGHT
     Route: 048
     Dates: end: 20150320

REACTIONS (2)
  - Medication overuse headache [Recovered/Resolved]
  - Drug abuse [Recovered/Resolved]

NARRATIVE: CASE EVENT DATE: 20150320
